FAERS Safety Report 5152321-5 (Version None)
Quarter: 2006Q4

REPORT INFORMATION
  Report Type: 
  Country: None (occurrence: None)
  Receive Date: 20061116
  Receipt Date: 20061108
  Transmission Date: 20070319
  Serious: Yes (Hospitalization)
  Sender: FDA-Public Use
  Company Number: US-AVENTIS-200619250US

PATIENT
  Age: 55 Year
  Sex: Male

DRUGS (18)
  1. LANTUS [Suspect]
     Indication: DIABETES MELLITUS
     Dates: start: 20051101
  2. OPTICLIK (INSULIN INJECTION PEN) [Suspect]
     Indication: DIABETES MELLITUS
     Dates: start: 20051101
  3. COUMADIN [Suspect]
     Dosage: DOSE: UNK
  4. ASPIRIN [Concomitant]
     Dosage: DOSE: UNK
  5. DIGITEK [Concomitant]
     Dosage: DOSE: UNK
  6. LISINOPRIL [Concomitant]
     Dosage: DOSE: UNK
  7. PACERONE [Concomitant]
     Dosage: DOSE: UNK
  8. TOPROL-XL [Concomitant]
     Dosage: DOSE: UNK
  9. SKELAXIN                           /00611501/ [Concomitant]
  10. CARAFATE [Concomitant]
     Dosage: DOSE: UNK
  11. HYDROCODONE [Concomitant]
     Dosage: DOSE: UNK
  12. GLIPZIDE [Concomitant]
     Dosage: DOSE: UNK
  13. FUROSEMIDE [Concomitant]
     Dosage: DOSE: UNK
  14. SPIROLACTONE [Concomitant]
     Dosage: DOSE: UNK
  15. LEXAPRO [Concomitant]
     Dosage: DOSE: UNK
  16. PROTONIX [Concomitant]
     Dosage: DOSE: UNK
  17. DUONEB [Concomitant]
     Dosage: DOSE: UNK
  18. VITAMIN B12 AMINO [Concomitant]
     Dosage: DOSE: UNK

REACTIONS (4)
  - BLOOD DISORDER [None]
  - INJECTION SITE BRUISING [None]
  - INTERNATIONAL NORMALISED RATIO INCREASED [None]
  - PNEUMONIA [None]
